FAERS Safety Report 21279386 (Version 2)
Quarter: 2022Q4

REPORT INFORMATION
  Report Type: Spontaneous
  Country: FR (occurrence: FR)
  Receive Date: 20220901
  Receipt Date: 20221013
  Transmission Date: 20230112
  Serious: Yes (Other)
  Sender: FDA-Public Use
  Company Number: None

PATIENT
  Age: 75 Year
  Sex: Female

DRUGS (7)
  1. BISOPROLOL FUMARATE [Suspect]
     Active Substance: BISOPROLOL FUMARATE
     Indication: Myocardial infarction
     Dosage: UNIT DOSE : 5 MG, FREQUENCY TIME : 1 DAY ,THERAPY END DATE : NASK
     Route: 065
     Dates: start: 20220705
  2. RAMIPRIL [Suspect]
     Active Substance: RAMIPRIL
     Indication: Myocardial infarction
     Dosage: UNIT DOSE :2.5 MG , FREQUENCY TIME : 1 DAY , THERAPY END DATE : NASK
     Route: 065
     Dates: start: 20220705
  3. ATORVASTATIN [Suspect]
     Active Substance: ATORVASTATIN
     Indication: Myocardial infarction
     Dosage: UNIT DOSE :40 MG , FREQUENCY TIME : 1 DAY ,  DURATION  : 38 DAYS
     Route: 065
     Dates: start: 20220705, end: 20220812
  4. KARDEGIC [Suspect]
     Active Substance: ASPIRIN DL-LYSINE
     Indication: Myocardial infarction
     Dosage: IN SACHET-DOSE ,UNIT DOSE AND STRENGTH : 75 MG, FREQUENCY TIME : 1 DAY , THERAPY END DATE : NASK
     Dates: start: 20220705
  5. TICAGRELOR [Suspect]
     Active Substance: TICAGRELOR
     Indication: Myocardial infarction
     Dosage: STRENGTH  : 90 MG,  UNIT DOSE :  180 MG, FREQUENCY TIME : 1 DAY , THERAPY END DATE : NASK
     Dates: start: 20220705
  6. VENLAFAXINE [Concomitant]
     Active Substance: VENLAFAXINE HYDROCHLORIDE
     Indication: Product used for unknown indication
     Dosage: UNIT DOSE : 37.5MG , FREQUENCY TIME : 1 DAY
  7. PANTOPRAZOLE [Concomitant]
     Active Substance: PANTOPRAZOLE
     Indication: Prophylaxis against gastrointestinal ulcer
     Dates: start: 20220705

REACTIONS (2)
  - Cholestatic liver injury [Recovering/Resolving]
  - Eosinophilia [Recovering/Resolving]

NARRATIVE: CASE EVENT DATE: 20220807
